FAERS Safety Report 14391841 (Version 1)
Quarter: 2018Q1

REPORT INFORMATION
  Report Type: Spontaneous
  Country: IT (occurrence: IT)
  Receive Date: 20180116
  Receipt Date: 20180116
  Transmission Date: 20180509
  Serious: Yes (Hospitalization, Other)
  Sender: FDA-Public Use
  Company Number: IT-JNJFOC-20171229664

PATIENT
  Age: 53 Year
  Sex: Male
  Weight: 85 kg

DRUGS (3)
  1. AMITRIPTYLINE WITH PERPHENAZINE [Interacting]
     Active Substance: AMITRIPTYLINE\PERPHENAZINE
     Indication: ABNORMAL BEHAVIOUR
     Route: 065
     Dates: start: 20170823
  2. XEPLION [Suspect]
     Active Substance: PALIPERIDONE PALMITATE
     Indication: PRODUCT USED FOR UNKNOWN INDICATION
     Route: 030
     Dates: end: 20171013
  3. XEPLION [Suspect]
     Active Substance: PALIPERIDONE PALMITATE
     Indication: PRODUCT USED FOR UNKNOWN INDICATION
     Route: 030
     Dates: start: 20171005

REACTIONS (3)
  - Drug interaction [Recovering/Resolving]
  - Posture abnormal [Recovering/Resolving]
  - Parkinsonism [Recovering/Resolving]
